FAERS Safety Report 4467923-9 (Version None)
Quarter: 2004Q4

REPORT INFORMATION
  Report Type: 
  Country: None (occurrence: None)
  Receive Date: 20041004
  Receipt Date: 20010916
  Transmission Date: 20050328
  Serious: Yes (Hospitalization)
  Sender: FDA-Public Use
  Company Number: 2004-ES-00188ES

PATIENT
  Age: 48 Year
  Sex: Male

DRUGS (1)
  1. VIRAMUNE [Suspect]
     Indication: TAENIASIS
     Dosage: SEE IMAGE
     Route: 048
     Dates: start: 20010115, end: 20010208

REACTIONS (5)
  - ARTHRALGIA [None]
  - ARTHRITIS [None]
  - PRURITUS [None]
  - PYREXIA [None]
  - RASH [None]
